FAERS Safety Report 11466558 (Version 2)
Quarter: 2015Q4

REPORT INFORMATION
  Report Type: Spontaneous
  Country: US (occurrence: US)
  Receive Date: 20150907
  Receipt Date: 20151014
  Transmission Date: 20160304
  Serious: Yes (Other)
  Sender: FDA-Public Use
  Company Number: US-TAKEDA-2014TUS013316

PATIENT

DRUGS (5)
  1. ACTOS [Suspect]
     Active Substance: PIOGLITAZONE HYDROCHLORIDE
     Dosage: 45 MG, UNK
     Route: 048
     Dates: start: 2011, end: 2012
  2. DIABETA                            /00145301/ [Concomitant]
     Dosage: 5 MG, QD
     Dates: start: 2010
  3. ACTOS [Suspect]
     Active Substance: PIOGLITAZONE HYDROCHLORIDE
     Dosage: 45 MG, UNK
     Route: 048
     Dates: start: 201302, end: 2015
  4. METFORMIN [Concomitant]
     Active Substance: METFORMIN HYDROCHLORIDE
     Dosage: 1000 MG, BID
     Dates: start: 2007
  5. ACTOS [Suspect]
     Active Substance: PIOGLITAZONE HYDROCHLORIDE
     Indication: TYPE 2 DIABETES MELLITUS
     Dosage: 45 MG, UNK
     Route: 048
     Dates: start: 200806, end: 2010

REACTIONS (1)
  - Bladder cancer [Unknown]

NARRATIVE: CASE EVENT DATE: 201403
